FAERS Safety Report 4515722-1 (Version None)
Quarter: 2004Q4

REPORT INFORMATION
  Report Type: 
  Country: None (occurrence: None)
  Receive Date: 20041118
  Receipt Date: 20041112
  Transmission Date: 20050328
  Serious: Yes (Hospitalization)
  Sender: FDA-Public Use
  Company Number: 200410354BBE

PATIENT
  Age: 65 Year
  Sex: Female
  Weight: 56.4 kg

DRUGS (2)
  1. GAMUNEX [Suspect]
     Dosage: 20 G, Q3WK, INTRAVENOUS
     Route: 042
  2. KETEK [Concomitant]

REACTIONS (5)
  - BRONCHITIS [None]
  - INFLUENZA LIKE ILLNESS [None]
  - NAUSEA [None]
  - RASH [None]
  - VOMITING [None]
